FAERS Safety Report 7070839-5 (Version None)
Quarter: 2010Q4

REPORT INFORMATION
  Report Type: 
  Country: None (occurrence: None)
  Receive Date: 20101029
  Receipt Date: 20100527
  Transmission Date: 20110411
  Serious: Yes (Death, Other)
  Sender: FDA-Public Use
  Company Number: US-ASTRAZENECA-2006UW00985

PATIENT
  Age: 26184 Day
  Sex: Male
  Weight: 93 kg

DRUGS (11)
  1. SEROQUEL [Suspect]
     Indication: HALLUCINATION
     Dosage: 50 MG - 100 MG
     Route: 048
     Dates: start: 20030501, end: 20030901
  2. SEROQUEL [Suspect]
     Dosage: 25 MG - 100 MG
     Route: 048
     Dates: start: 20030528
  3. RISPERDAL [Suspect]
  4. ZYPREXA [Suspect]
  5. METOCLOPRAMIDE HCL [Concomitant]
     Dates: start: 20030527
  6. CARBIDOPA AND LEVODOPA [Concomitant]
     Dosage: 10/100 MG, 0.5 MG BID
     Dates: start: 20030528
  7. DOCUSATE NA [Concomitant]
     Dates: start: 20030527
  8. CITALOPRAM HYDROBROMIDE [Concomitant]
     Dates: start: 20030527
  9. TRAZODONE HCL [Concomitant]
     Dates: start: 20030527
  10. ARICEPT [Concomitant]
     Dates: start: 20030905
  11. COMTAN [Concomitant]
     Dates: start: 20030905

REACTIONS (3)
  - DEATH [None]
  - NEUROLEPTIC MALIGNANT SYNDROME [None]
  - TYPE 2 DIABETES MELLITUS [None]
